FAERS Safety Report 5389489-1 (Version None)
Quarter: 2007Q3

REPORT INFORMATION
  Report Type: 
  Country: None (occurrence: None)
  Receive Date: 20070717
  Receipt Date: 20070705
  Transmission Date: 20080115
  Serious: Yes (Other)
  Sender: FDA-Public Use
  Company Number: HQWYE381425MAY07

PATIENT
  Sex: Female
  Weight: 69.92 kg

DRUGS (7)
  1. LODINE [Suspect]
     Indication: OSTEOARTHRITIS
     Route: 048
     Dates: start: 20070418, end: 20070508
  2. PYRIDOXINE HYDROCHLORIDE [Concomitant]
     Route: 048
  3. CRESTOR [Concomitant]
     Route: 048
  4. HYDROCHLOROTHIAZIDE [Concomitant]
     Route: 048
  5. SYNTHROID [Concomitant]
     Route: 048
  6. NEXIUM [Concomitant]
     Route: 048
  7. ASCORBIC ACID/ERGOCALCIFEROL/FOLIC ACID/NICOTINAMIDE/PANTHENOL/RETINOL [Concomitant]
     Route: 048

REACTIONS (1)
  - CHEST PAIN [None]
